FAERS Safety Report 10694455 (Version 3)
Quarter: 2015Q1

REPORT INFORMATION
  Report Type: Spontaneous
  Country: IT (occurrence: IT)
  Receive Date: 20150107
  Receipt Date: 20150204
  Transmission Date: 20150721
  Serious: Yes (Hospitalization)
  Sender: FDA-Public Use
  Company Number: IT-009507513-1501ITA000310

PATIENT
  Age: 54 Year
  Sex: Female

DRUGS (7)
  1. MIRTAZAPINE. [Suspect]
     Active Substance: MIRTAZAPINE
     Dosage: UNK
     Route: 048
  2. MIRTAZAPINE. [Suspect]
     Active Substance: MIRTAZAPINE
     Dosage: UNKNOWN DECREASED DOSAGE
     Route: 048
     Dates: start: 201403
  3. MIRTAZAPINE. [Suspect]
     Active Substance: MIRTAZAPINE
     Indication: DEPRESSION
     Dosage: 30 MG, QD
     Route: 048
     Dates: start: 20140302, end: 20140303
  4. LYRICA [Concomitant]
     Active Substance: PREGABALIN
     Dosage: UNK
  5. ENTACT [Concomitant]
     Active Substance: ESCITALOPRAM OXALATE
     Dosage: UNK
  6. COUMADIN [Concomitant]
     Active Substance: WARFARIN SODIUM
     Dosage: UNK
  7. PENTASA [Concomitant]
     Active Substance: MESALAMINE
     Dosage: UNK

REACTIONS (2)
  - Shock [Recovered/Resolved]
  - Hypotension [Recovered/Resolved]

NARRATIVE: CASE EVENT DATE: 20140303
